FAERS Safety Report 12179917 (Version 1)
Quarter: 2016Q1

REPORT INFORMATION
  Report Type: Spontaneous
  Country: US (occurrence: US)
  Receive Date: 20160315
  Receipt Date: 20160315
  Transmission Date: 20160526
  Serious: No
  Sender: FDA-Public Use
  Company Number: JP-WARNER CHILCOTT 2015-000228

PATIENT
  Age: 63 Year
  Sex: Female
  Weight: 69.55 kg

DRUGS (5)
  1. CALCIUM 600 + D [Concomitant]
     Active Substance: CALCIUM\VITAMIN D
  2. SYNTHROID [Concomitant]
     Active Substance: LEVOTHYROXINE SODIUM
  3. ESTRACE [Suspect]
     Active Substance: ESTRADIOL
     Indication: ATROPHIC VULVOVAGINITIS
     Route: 067
  4. DIFLUCAN [Concomitant]
     Active Substance: FLUCONAZOLE
     Dates: start: 20141218
  5. PRAVASTATIN [Concomitant]
     Active Substance: PRAVASTATIN\PRAVASTATIN SODIUM

REACTIONS (6)
  - Vulvovaginal burning sensation [None]
  - Condition aggravated [None]
  - Wound secretion [None]
  - Vaginal inflammation [None]
  - Vulvovaginal injury [None]
  - Vulvovaginal discomfort [None]
